FAERS Safety Report 15458015 (Version 3)
Quarter: 2018Q4

REPORT INFORMATION
  Report Type: Report from Study
  Country: AU (occurrence: AU)
  Receive Date: 20181003
  Receipt Date: 20181123
  Transmission Date: 20190204
  Serious: Yes (Hospitalization, Other)
  Sender: FDA-Public Use
  Company Number: AU-ROCHE-2169953

PATIENT
  Age: 63 Year
  Sex: Female

DRUGS (4)
  1. TELMISARTAN. [Concomitant]
     Active Substance: TELMISARTAN
     Indication: CARDIOVASCULAR EVENT PROPHYLAXIS
     Dosage: ONGOING
     Route: 048
  2. ASPIRIN. [Concomitant]
     Active Substance: ASPIRIN
     Indication: CARDIOVASCULAR EVENT PROPHYLAXIS
     Dosage: ONGOING
     Route: 065
  3. JANUMET [Concomitant]
     Active Substance: METFORMIN HYDROCHLORIDE\SITAGLIPTIN PHOSPHATE
     Indication: DIABETES MELLITUS
     Dosage: 50/1000 MG; MANE; ONGOING
     Route: 048
  4. ACTEMRA [Suspect]
     Active Substance: TOCILIZUMAB
     Indication: RHEUMATOID ARTHRITIS
     Route: 042
     Dates: start: 20150625

REACTIONS (4)
  - Foot fracture [Recovering/Resolving]
  - Ankle fracture [Recovering/Resolving]
  - Osteoporosis [Unknown]
  - Ankle fracture [Recovering/Resolving]

NARRATIVE: CASE EVENT DATE: 201805
